FAERS Safety Report 5578186-5 (Version None)
Quarter: 2007Q4

REPORT INFORMATION
  Report Type: 
  Country: None (occurrence: None)
  Receive Date: 20071227
  Receipt Date: 20071210
  Transmission Date: 20080405
  Serious: Yes (Hospitalization, Other)
  Sender: FDA-Public Use
  Company Number: 2007S1000303

PATIENT
  Age: 38 Year
  Sex: Female

DRUGS (1)
  1. ACITRETIN [Suspect]
     Indication: DRUG USE FOR UNKNOWN INDICATION
     Dosage: ; PO
     Route: 048

REACTIONS (5)
  - ALCOHOL USE [None]
  - CEREBRAL ARTERY STENOSIS [None]
  - CEREBROVASCULAR ACCIDENT [None]
  - SMOKER [None]
  - TRANSIENT ISCHAEMIC ATTACK [None]
